FAERS Safety Report 5677836-2 (Version None)
Quarter: 2008Q1

REPORT INFORMATION
  Report Type: 
  Country: None (occurrence: None)
  Receive Date: 20080314
  Receipt Date: 20080229
  Transmission Date: 20080703
  Serious: Yes (Hospitalization)
  Sender: FDA-Public Use
  Company Number: THYM-11059

PATIENT
  Age: 58 Year
  Sex: Male
  Weight: 75 kg

DRUGS (6)
  1. THYMOGLOBULIN [Suspect]
     Indication: LIVER TRANSPLANT
     Dosage: 110 MG, QD, INTRAVENOUS; 55 MG, QD, INTRAVENOUS
     Route: 042
     Dates: start: 20060616, end: 20060616
  2. THYMOGLOBULIN [Suspect]
     Indication: LIVER TRANSPLANT
     Dosage: 110 MG, QD, INTRAVENOUS; 55 MG, QD, INTRAVENOUS
     Route: 042
     Dates: start: 20060617, end: 20060622
  3. TACROLIMUS [Concomitant]
  4. MYCOPHENOLATE MOFETIL [Concomitant]
  5. BACTRIM DS [Concomitant]
  6. VALCYTE [Concomitant]

REACTIONS (4)
  - ANAEMIA [None]
  - FATIGUE [None]
  - NEUTROPENIA [None]
  - PALPITATIONS [None]
